FAERS Safety Report 26034321 (Version 2)
Quarter: 2025Q4

REPORT INFORMATION
  Report Type: Spontaneous
  Country: US (occurrence: US)
  Receive Date: 20251112
  Receipt Date: 20251120
  Transmission Date: 20260118
  Serious: Yes (Other)
  Sender: TEVA
  Company Number: US-TEVA-VS-3389454

PATIENT
  Age: 77 Year
  Sex: Male

DRUGS (8)
  1. PREDNISONE [Suspect]
     Active Substance: PREDNISONE
     Indication: Chronic pigmented purpura
     Dosage: DOSE WAS TAPERED OVER 4-6 WEEKS
     Route: 061
  2. PREDNISONE [Suspect]
     Active Substance: PREDNISONE
     Indication: Chronic pigmented purpura
     Route: 061
  3. KETOCONAZOLE [Concomitant]
     Active Substance: KETOCONAZOLE
     Indication: Chronic pigmented purpura
     Route: 061
  4. CLOTRIMAZOLE [Concomitant]
     Active Substance: CLOTRIMAZOLE
     Indication: Chronic pigmented purpura
     Route: 061
  5. PEMBROLIZUMAB [Suspect]
     Active Substance: PEMBROLIZUMAB
     Indication: Non-small cell lung cancer metastatic
     Route: 042
  6. TERBINAFINE [Concomitant]
     Active Substance: TERBINAFINE
     Indication: Chronic pigmented purpura
     Route: 061
  7. FLUOCINONIDE [Concomitant]
     Active Substance: FLUOCINONIDE
     Indication: Chronic pigmented purpura
     Route: 061
  8. TRIAMCINOLONE [Concomitant]
     Active Substance: TRIAMCINOLONE
     Indication: Chronic pigmented purpura
     Route: 061

REACTIONS (4)
  - Chronic pigmented purpura [Recovering/Resolving]
  - Rebound effect [Recovering/Resolving]
  - Rash [Recovering/Resolving]
  - Condition aggravated [Recovering/Resolving]
